FAERS Safety Report 8591352-X (Version None)
Quarter: 2012Q3

REPORT INFORMATION
  Report Type: 
  Country: None (occurrence: None)
  Receive Date: 20120730
  Receipt Date: 20120723
  Transmission Date: 20120928
  Serious: Yes (Other)
  Sender: FDA-Public Use
  Company Number: 2011030267

PATIENT
  Sex: Female
  Weight: 102.0593 kg

DRUGS (13)
  1. .. [Concomitant]
  2. HIZENTRA [Suspect]
  3. BYSTOLIC [Concomitant]
  4. CALCIUM [Concomitant]
  5. .. [Concomitant]
  6. ZYRTEC [Concomitant]
  7. .. [Concomitant]
  8. HIZENTRA [Suspect]
     Indication: IMMUNODEFICIENCY COMMON VARIABLE
     Dosage: SEE IMAGE
     Route: 058
     Dates: start: 20100824
  9. VIVELLE [Concomitant]
  10. .. [Concomitant]
  11. .. [Concomitant]
  12. CRESTOR [Concomitant]
  13. VITAMIN D [Concomitant]

REACTIONS (3)
  - BLOOD CREATININE INCREASED [None]
  - BLOOD UREA INCREASED [None]
  - RENAL DISORDER [None]
